FAERS Safety Report 4834179-4 (Version None)
Quarter: 2005Q4

REPORT INFORMATION
  Report Type: 
  Country: None (occurrence: None)
  Receive Date: 20051118
  Receipt Date: 20051118
  Transmission Date: 20060501
  Serious: Yes (Other)
  Sender: FDA-Public Use
  Company Number: None

PATIENT
  Age: 41 Year
  Sex: Male
  Weight: 120 kg

DRUGS (42)
  1. DEFIBROTIDE [Suspect]
     Indication: VENOOCCLUSIVE DISEASE
     Dosage: 800 MG Q 6 HRS
     Dates: start: 20051115
  2. HYDROMORPHONE [Concomitant]
  3. BENADRYL [Concomitant]
  4. DIPHENHYDRAMINE HCL [Concomitant]
  5. TRIAMCINOLONE [Concomitant]
  6. DRY SKIN BATH OIL [Concomitant]
  7. DILAUDID [Concomitant]
  8. INSULIN -REG HUMULIN [Concomitant]
  9. CHLORHEXIDINE [Concomitant]
  10. SALT AND SODA MOUTHWASH [Concomitant]
  11. CLOTRIMAZOLE TROCHE [Concomitant]
  12. LORAZEPAM [Concomitant]
  13. NYSTATIN [Concomitant]
  14. ACYCLOVIR [Concomitant]
  15. ADULT TPN [Concomitant]
  16. PREVACID [Concomitant]
  17. FUROSEMIDE [Concomitant]
  18. POSTASSIUM CHLORIDE [Concomitant]
  19. ALTEPLASE [Concomitant]
  20. OCEAN NASAL SPRAY [Concomitant]
  21. APREPITANT (EMEND) [Concomitant]
  22. NYSTATIN [Concomitant]
  23. HYDROCORTISONE [Concomitant]
  24. CALCIUM GLUCONATE [Concomitant]
  25. ATIVAN [Concomitant]
  26. MILK OF MAGNESIA TAB [Concomitant]
  27. PHENERGAN; PROMETHAZINE [Concomitant]
  28. FLEXERILL; CYCLOBENZAPRINE [Concomitant]
  29. ONDANSETRON [Concomitant]
  30. COMPAZINE [Concomitant]
  31. LORAZEPAM [Concomitant]
  32. CASPOFUNGIN [Concomitant]
  33. SILVADENE; SILVER SULFADAZINE [Concomitant]
  34. ARTIFICAL TEARS [Concomitant]
  35. INFLIXIMAB [Concomitant]
  36. DIPHENHYDRAMINE HCL [Concomitant]
  37. ACTIGALL [Concomitant]
  38. ENOXAPARIN [Concomitant]
  39. TACROLIMUS [Concomitant]
  40. IMMUNE GLOBULIN (HUMAN) [Concomitant]
  41. BACITRACIN [Concomitant]
  42. SOLU-MEDROL [Concomitant]

REACTIONS (3)
  - HYPERTENSION [None]
  - MYOCARDIAL INFARCTION [None]
  - TACHYCARDIA [None]
